FAERS Safety Report 6223384-0 (Version None)
Quarter: 2009Q2

REPORT INFORMATION
  Report Type: 
  Country: None (occurrence: None)
  Receive Date: 20090609
  Receipt Date: 20090605
  Transmission Date: 20091009
  Serious: Yes (Other)
  Sender: FDA-Public Use
  Company Number: 2009SP012319

PATIENT
  Age: 50 Year
  Sex: Male

DRUGS (5)
  1. CELESTAMINE TAB [Suspect]
     Indication: OTITIS MEDIA
     Dosage: 2 DF; PO
     Route: 048
     Dates: start: 20090526
  2. CELESTAMINE TAB [Suspect]
     Indication: PHARYNGITIS
     Dosage: 2 DF; PO
     Route: 048
     Dates: start: 20090526
  3. CELESTAMINE TAB [Suspect]
     Indication: SINUSITIS
     Dosage: 2 DF; PO
     Route: 048
     Dates: start: 20090526
  4. RULID (CON.) [Concomitant]
  5. MUCODYNE (CON.) [Concomitant]

REACTIONS (2)
  - LOSS OF CONSCIOUSNESS [None]
  - SLEEP ATTACKS [None]
